FAERS Safety Report 19684254 (Version 3)
Quarter: 2021Q3

REPORT INFORMATION
  Report Type: Spontaneous
  Country: IT (occurrence: IT)
  Receive Date: 20210811
  Receipt Date: 20210929
  Transmission Date: 20211014
  Serious: Yes (Other)
  Sender: FDA-Public Use
  Company Number: NVSC2021IT085796

PATIENT
  Age: 71 Year
  Sex: Male

DRUGS (41)
  1. MIRTAZAPINE. [Suspect]
     Active Substance: MIRTAZAPINE
     Indication: AFFECTIVE DISORDER
     Dosage: 30 MILLIGRAM
     Route: 048
     Dates: start: 2010, end: 2020
  2. ETORICOXIB. [Suspect]
     Active Substance: ETORICOXIB
     Indication: HYPERTONIC BLADDER
     Dosage: 60 MG (60 MG FOR 2 WEEKS)
     Route: 065
     Dates: start: 201612
  3. FESOTERODINE [Suspect]
     Active Substance: FESOTERODINE
     Indication: HYPERTONIC BLADDER
     Dosage: UNK
     Route: 065
     Dates: start: 2017
  4. TROSPIUM [Suspect]
     Active Substance: TROSPIUM
     Indication: HYPERPLASIA
     Dosage: UNK
     Route: 048
     Dates: start: 201703
  5. TROSPIUM [Suspect]
     Active Substance: TROSPIUM
     Indication: HYPERTONIC BLADDER
  6. PRULIFLOXACIN [Suspect]
     Active Substance: PRULIFLOXACIN
     Indication: HYPERTONIC BLADDER
     Dosage: UNK
     Route: 065
     Dates: start: 201703
  7. MIRABEGRON [Concomitant]
     Active Substance: MIRABEGRON
     Indication: BENIGN PROSTATIC HYPERPLASIA
     Dosage: UNK
     Route: 065
     Dates: start: 2015
  8. AMIKACIN. [Concomitant]
     Active Substance: AMIKACIN
     Indication: PRODUCT USED FOR UNKNOWN INDICATION
     Dosage: UNK UNK, BID
     Route: 065
  9. SERTRALINE [Suspect]
     Active Substance: SERTRALINE HYDROCHLORIDE
     Indication: AFFECTIVE DISORDER
  10. ALFUZOSIN [Suspect]
     Active Substance: ALFUZOSIN
     Indication: HYPERTONIC BLADDER
     Dosage: UNK, QD (IN THE EVENING)
     Route: 065
     Dates: start: 201703
  11. LEVOFLOXACIN. [Suspect]
     Active Substance: LEVOFLOXACIN
     Indication: PROSTATIC ADENOMA
     Dosage: 500 MG, UNKNOWN
     Route: 048
     Dates: start: 201703
  12. CIPROFLOXACIN. [Suspect]
     Active Substance: CIPROFLOXACIN
     Indication: INFLAMMATION
  13. MACROGOL [Concomitant]
     Active Substance: POLYETHYLENE GLYCOLS
     Indication: PRODUCT USED FOR UNKNOWN INDICATION
     Dosage: 400 MG
     Route: 065
  14. PAROXETINE. [Suspect]
     Active Substance: PAROXETINE
     Indication: MEMORY IMPAIRMENT
     Dosage: UNK
     Route: 048
     Dates: start: 2010, end: 2020
  15. SERTRALINE [Suspect]
     Active Substance: SERTRALINE HYDROCHLORIDE
     Indication: MEMORY IMPAIRMENT
     Dosage: UNK
     Route: 048
     Dates: start: 2010, end: 2020
  16. LEVOFLOXACIN. [Suspect]
     Active Substance: LEVOFLOXACIN
     Indication: HYPERTONIC BLADDER
     Dosage: UNK
     Route: 065
     Dates: start: 2018
  17. LEVOFLOXACIN. [Suspect]
     Active Substance: LEVOFLOXACIN
     Indication: ESCHERICHIA INFECTION
  18. ENOXAPARIN [Concomitant]
     Active Substance: ENOXAPARIN
     Indication: PRODUCT USED FOR UNKNOWN INDICATION
     Dosage: UNK
     Route: 058
  19. QUETIAPINE. [Concomitant]
     Active Substance: QUETIAPINE
     Indication: PRODUCT USED FOR UNKNOWN INDICATION
     Dosage: 25 MG, QD (IN THE EVENING)
     Route: 065
  20. DICLOREUM [Concomitant]
     Active Substance: DICLOFENAC SODIUM
     Indication: PRODUCT USED FOR UNKNOWN INDICATION
     Dosage: 100 MG, UNKNOWN
     Route: 065
  21. ALPRAZOLAM. [Suspect]
     Active Substance: ALPRAZOLAM
     Indication: HYPOAESTHESIA
     Dosage: 1 MG, TID
     Route: 048
     Dates: start: 2013
  22. CIPROFLOXACIN. [Suspect]
     Active Substance: CIPROFLOXACIN
     Indication: HYPERTONIC BLADDER
     Dosage: UNK
     Route: 048
     Dates: start: 201703
  23. MOMETASONE FUROATE. [Suspect]
     Active Substance: MOMETASONE FUROATE
     Indication: DERMATITIS
     Dosage: UNK, PRN
     Route: 061
     Dates: start: 2018
  24. SILODOSIN. [Concomitant]
     Active Substance: SILODOSIN
     Indication: PRODUCT USED FOR UNKNOWN INDICATION
     Dosage: 8 MG, QD (8 MILLIGRAM IN THE EVENING AFTER DINNER)
     Route: 065
  25. VENLAFAXINE [Concomitant]
     Active Substance: VENLAFAXINE HYDROCHLORIDE
     Indication: PRODUCT USED FOR UNKNOWN INDICATION
     Dosage: 37.5 MG (37.5 MG IN THE MORNING FOR SEVEN DAYS AND THEN 75 MG)
     Route: 065
  26. VENLAFAXINE [Concomitant]
     Active Substance: VENLAFAXINE HYDROCHLORIDE
     Dosage: 75 UNK, UNKNOWN
     Route: 065
  27. PREGABALIN. [Concomitant]
     Active Substance: PREGABALIN
     Indication: PRODUCT USED FOR UNKNOWN INDICATION
     Dosage: UNK, QD
     Route: 065
     Dates: start: 202007
  28. ALPRAZOLAM. [Suspect]
     Active Substance: ALPRAZOLAM
     Indication: SLEEP DISORDER
     Dosage: 150 MG, QD (50 MILLIGRAM, TID)
     Route: 065
  29. ETORICOXIB. [Suspect]
     Active Substance: ETORICOXIB
     Indication: ABDOMINAL PAIN LOWER
  30. ALPRAZOLAM. [Suspect]
     Active Substance: ALPRAZOLAM
     Indication: PAIN
  31. PARACETAMOL [Suspect]
     Active Substance: ACETAMINOPHEN
     Indication: PAIN
     Dosage: 1 G (AS NEEDED 1 GRAM)
     Route: 065
     Dates: start: 2017
  32. CODEINE [Suspect]
     Active Substance: CODEINE
     Indication: PAIN
     Dosage: UNK
     Route: 054
     Dates: start: 2017
  33. MIRABEGRON [Concomitant]
     Active Substance: MIRABEGRON
     Indication: DYSURIA
  34. OXIBUTININA [Suspect]
     Active Substance: OXYBUTYNIN
     Indication: PAIN
     Dosage: UNK
     Route: 065
     Dates: start: 201703
  35. MEROPENEM. [Suspect]
     Active Substance: MEROPENEM
     Indication: ESCHERICHIA INFECTION
     Dosage: UNK
     Route: 042
     Dates: start: 2018
  36. PAROXETINE. [Suspect]
     Active Substance: PAROXETINE
     Indication: AFFECTIVE DISORDER
  37. MIRTAZAPINE. [Suspect]
     Active Substance: MIRTAZAPINE
     Indication: MEMORY IMPAIRMENT
  38. CIPROFLOXACIN. [Suspect]
     Active Substance: CIPROFLOXACIN
     Indication: PROSTATIC ADENOMA
  39. KETOROLAC [Suspect]
     Active Substance: KETOROLAC TROMETHAMINE
     Indication: PAIN
     Dosage: UNK
     Route: 065
     Dates: start: 2017
  40. LACTULOSE. [Concomitant]
     Active Substance: LACTULOSE
     Indication: PRODUCT USED FOR UNKNOWN INDICATION
     Dosage: UNK, QD (IN THE EVENING)
     Route: 065
  41. NALOXONE [Concomitant]
     Active Substance: NALOXONE
     Indication: PRODUCT USED FOR UNKNOWN INDICATION
     Dosage: 20 MILLIGRAM, ONE TO 3 TIMES A DAY
     Route: 065
     Dates: start: 201806

REACTIONS (30)
  - Benign prostatic hyperplasia [Recovered/Resolved]
  - Oral candidiasis [Recovered/Resolved]
  - Escherichia infection [Recovered/Resolved]
  - Product use in unapproved indication [Unknown]
  - Cystitis interstitial [Unknown]
  - Oliguria [Recovered/Resolved]
  - Dysuria [Unknown]
  - Abdominal pain [Unknown]
  - Drug ineffective [Unknown]
  - Tendon disorder [Unknown]
  - Urethral stenosis [Recovered/Resolved]
  - Hypertonic bladder [Recovered/Resolved]
  - Sleep disorder [Recovered/Resolved]
  - Salivary gland disorder [Recovered/Resolved]
  - Depression [Recovering/Resolving]
  - Intentional product misuse [Unknown]
  - Rash [Unknown]
  - Parapsoriasis [Unknown]
  - Weight decreased [Unknown]
  - Dysstasia [Unknown]
  - Micturition urgency [Recovering/Resolving]
  - Condition aggravated [Recovering/Resolving]
  - Perineal pain [Unknown]
  - Exostosis [Unknown]
  - Nervous system disorder [Recovered/Resolved]
  - Insomnia [Recovered/Resolved]
  - Hypoaesthesia [Recovered/Resolved]
  - Klebsiella infection [Unknown]
  - Constipation [Unknown]
  - Muscle spasms [Unknown]

NARRATIVE: CASE EVENT DATE: 2013
